FAERS Safety Report 8439597-3 (Version None)
Quarter: 2012Q2

REPORT INFORMATION
  Report Type: 
  Country: None (occurrence: None)
  Receive Date: 20120615
  Receipt Date: 20120607
  Transmission Date: 20120825
  Serious: Yes (Hospitalization)
  Sender: FDA-Public Use
  Company Number: CN-GENZYME-CERZ-1002533

PATIENT
  Sex: Female
  Weight: 38 kg

DRUGS (2)
  1. CEREZYME [Suspect]
     Indication: GAUCHER'S DISEASE
     Dosage: 10.5 U/KG, Q4W
     Route: 042
     Dates: start: 20111221, end: 20120502
  2. CEREZYME [Suspect]
     Dosage: UNK
     Route: 042
     Dates: start: 20001001

REACTIONS (1)
  - OSTEOMYELITIS [None]
